FAERS Safety Report 5357396-6 (Version None)
Quarter: 2007Q2

REPORT INFORMATION
  Report Type: 
  Country: None (occurrence: None)
  Receive Date: 20070612
  Receipt Date: 20070612
  Transmission Date: 20071010
  Serious: No
  Sender: FDA-Public Use
  Company Number: None

PATIENT
  Age: 76 Year
  Sex: Male
  Weight: 83.9154 kg

DRUGS (1)
  1. MORPHINE SULFATE [Suspect]
     Indication: CHEST PAIN
     Dosage: 4MG X1 IV
     Route: 042
     Dates: start: 20070418, end: 20070418

REACTIONS (2)
  - INJECTION SITE IRRITATION [None]
  - INJECTION SITE PAIN [None]
